FAERS Safety Report 20209366 (Version 1)
Quarter: 2021Q4

REPORT INFORMATION
  Report Type: Spontaneous
  Country: US (occurrence: US)
  Receive Date: 20211220
  Receipt Date: 20211220
  Transmission Date: 20220303
  Serious: Yes (Hospitalization, Other)
  Sender: FDA-Public Use
  Company Number: US-STRIDES ARCOLAB LIMITED-2021SP031053

PATIENT
  Age: 25 Year
  Sex: Male

DRUGS (5)
  1. BUSPIRONE HYDROCHLORIDE [Suspect]
     Active Substance: BUSPIRONE HYDROCHLORIDE
     Indication: Generalised anxiety disorder
     Dosage: UNK; DAILY
     Route: 065
     Dates: start: 2020
  2. CLONAZEPAM [Suspect]
     Active Substance: CLONAZEPAM
     Indication: Generalised anxiety disorder
     Dosage: 0.25 MILLIGRAM DAILY
     Route: 065
     Dates: start: 2020
  3. CLONAZEPAM [Suspect]
     Active Substance: CLONAZEPAM
     Dosage: UNK (TAPERED)
     Route: 065
     Dates: start: 202103
  4. SERTRALINE [Suspect]
     Active Substance: SERTRALINE HYDROCHLORIDE
     Indication: Generalised anxiety disorder
     Dosage: UNK
     Route: 065
     Dates: start: 202003
  5. OLANZAPINE [Suspect]
     Active Substance: OLANZAPINE
     Indication: Generalised anxiety disorder
     Dosage: 5 MILLIGRAM, AT BED TIME
     Route: 065

REACTIONS (3)
  - Disinhibition [Unknown]
  - Parotid gland enlargement [Recovered/Resolved]
  - Off label use [Unknown]
